FAERS Safety Report 10402328 (Version 2)
Quarter: 2014Q3

REPORT INFORMATION
  Report Type: Spontaneous
  Country: US (occurrence: US)
  Receive Date: 20140822
  Receipt Date: 20140822
  Transmission Date: 20150326
  Serious: No
  Sender: FDA-Public Use
  Company Number: US-PFIZER INC-2014218820

PATIENT
  Sex: Male

DRUGS (2)
  1. CAVERJECT [Suspect]
     Active Substance: ALPROSTADIL
     Dosage: 1 ML (EXTRACTED 0.5 CC FROM VIAL AND INJECTED RIGHT SIDE AND 0.5 CC LEFT SIDE)
     Dates: start: 201407
  2. CAVERJECT [Suspect]
     Active Substance: ALPROSTADIL
     Indication: ERECTILE DYSFUNCTION
     Dosage: 20 ML, UNK

REACTIONS (2)
  - Drug dispensing error [Unknown]
  - Burning sensation [Unknown]
